FAERS Safety Report 24028394 (Version 1)
Quarter: 2024Q2

REPORT INFORMATION
  Report Type: Report from Study
  Country: GB (occurrence: GB)
  Receive Date: 20240628
  Receipt Date: 20240628
  Transmission Date: 20240715
  Serious: Yes (Other)
  Sender: FDA-Public Use
  Company Number: GB-MYLANLABS-2024M1057187

PATIENT
  Sex: Male

DRUGS (7)
  1. LEVETIRACETAM [Suspect]
     Active Substance: LEVETIRACETAM
     Indication: Encephalopathy
     Dosage: UNK
     Route: 065
  2. TOCILIZUMAB [Suspect]
     Active Substance: TOCILIZUMAB
     Indication: Autoinflammatory disease
     Dosage: 162 MILLIGRAM, BIWEEKLY, UP-TITRATED
     Route: 058
  3. TOCILIZUMAB [Suspect]
     Active Substance: TOCILIZUMAB
     Dosage: UNK, THERAPY DISCONTINUED FOLLOWED BY RE-INITIATION
     Route: 058
  4. BARICITINIB [Suspect]
     Active Substance: BARICITINIB
     Indication: Autoinflammatory disease
     Dosage: 2 MILLIGRAM, TID, THRICE A DAY
     Route: 065
  5. BARICITINIB [Suspect]
     Active Substance: BARICITINIB
     Dosage: 4 MILLIGRAM, BID, INCREASED
     Route: 065
  6. PREDNISOLONE [Concomitant]
     Active Substance: PREDNISOLONE
     Indication: Autoinflammatory disease
     Dosage: 2 MILLIGRAM/KILOGRAM, QD, SCHEDULED TO WEAN OFF BY 5MG PER WEEK TO 5?MG/DAY
     Route: 065
  7. PREDNISOLONE [Concomitant]
     Active Substance: PREDNISOLONE
     Dosage: 0.25 MILLIGRAM/KILOGRAM, QD
     Route: 065

REACTIONS (2)
  - Drug ineffective for unapproved indication [Unknown]
  - Off label use [Unknown]
